FAERS Safety Report 7114176-9 (Version None)
Quarter: 2010Q4

REPORT INFORMATION
  Report Type: 
  Country: None (occurrence: None)
  Receive Date: 20101119
  Receipt Date: 20101112
  Transmission Date: 20110411
  Serious: Yes (Hospitalization)
  Sender: FDA-Public Use
  Company Number: DK-CEPHALON-2010002567

PATIENT
  Age: 62 Year
  Sex: Female
  Weight: 67 kg

DRUGS (2)
  1. TREANDA [Suspect]
     Indication: CHRONIC LYMPHOCYTIC LEUKAEMIA
     Route: 042
     Dates: start: 20100317, end: 20100412
  2. RITUXIMAB [Suspect]
     Route: 042
     Dates: start: 20100316

REACTIONS (2)
  - PNEUMONITIS [None]
  - SEPSIS [None]
